FAERS Safety Report 9938744 (Version 1)
Quarter: 2014Q1

REPORT INFORMATION
  Report Type: Spontaneous
  Country: US (occurrence: US)
  Receive Date: 20140303
  Receipt Date: 20140303
  Transmission Date: 20141002
  Serious: No
  Sender: FDA-Public Use
  Company Number: US-PFIZER INC-2014048419

PATIENT
  Sex: Female

DRUGS (5)
  1. ENBREL [Suspect]
     Dosage: UNK
  2. XELJANZ [Suspect]
     Dosage: 5 MG, 2X/DAY
  3. HUMIRA [Suspect]
     Dosage: UNK
  4. ORENCIA [Suspect]
     Dosage: UNK
  5. SIMPONI [Suspect]
     Dosage: UNK

REACTIONS (4)
  - Decreased appetite [Unknown]
  - Weight decreased [Unknown]
  - Diarrhoea [Unknown]
  - Nail discolouration [Unknown]
